FAERS Safety Report 19444504 (Version 2)
Quarter: 2023Q2

REPORT INFORMATION
  Report Type: Report from Study
  Country: IT (occurrence: IT)
  Receive Date: 20210621
  Receipt Date: 20230419
  Transmission Date: 20230722
  Serious: Yes (Hospitalization)
  Sender: FDA-Public Use
  Company Number: DE-TAKEDA-2021TUS037520

PATIENT
  Age: 52 Year
  Sex: Male
  Weight: 90 kg

DRUGS (17)
  1. ADVATE [Suspect]
     Active Substance: ANTIHEMOPHILIC FACTOR, HUMAN RECOMBINANT
     Indication: Factor VIII deficiency
     Dosage: 4000 INTERNATIONAL UNIT
     Route: 042
     Dates: start: 20200519
  2. ADVATE [Suspect]
     Active Substance: ANTIHEMOPHILIC FACTOR, HUMAN RECOMBINANT
     Indication: Factor VIII deficiency
     Dosage: 4000 INTERNATIONAL UNIT
     Route: 042
     Dates: start: 20200519
  3. ADVATE [Suspect]
     Active Substance: ANTIHEMOPHILIC FACTOR, HUMAN RECOMBINANT
     Indication: Factor VIII deficiency
     Dosage: 4000 INTERNATIONAL UNIT
     Route: 042
     Dates: start: 20200519
  4. ADVATE [Suspect]
     Active Substance: ANTIHEMOPHILIC FACTOR, HUMAN RECOMBINANT
     Indication: Prophylaxis
     Dosage: 4000 INTERNATIONAL UNIT
     Route: 042
     Dates: start: 20200519
  5. ADVATE [Suspect]
     Active Substance: ANTIHEMOPHILIC FACTOR, HUMAN RECOMBINANT
     Indication: Prophylaxis
     Dosage: 4000 INTERNATIONAL UNIT
     Route: 042
     Dates: start: 20200519
  6. ADVATE [Suspect]
     Active Substance: ANTIHEMOPHILIC FACTOR, HUMAN RECOMBINANT
     Indication: Prophylaxis
     Dosage: 4000 INTERNATIONAL UNIT
     Route: 042
     Dates: start: 20200519
  7. BECLOMETHASONE DIPROPIONATE [Concomitant]
     Active Substance: BECLOMETHASONE DIPROPIONATE
     Indication: Nasal polyps
     Dosage: 2 PUFFS, BID
     Route: 065
     Dates: start: 20200722, end: 20201022
  8. BUDESONIDE [Concomitant]
     Active Substance: BUDESONIDE
     Indication: Nasal polyps
     Dosage: 2 PUFFS, BID
     Route: 065
     Dates: start: 20201221
  9. CARBAMAZEPINE [Concomitant]
     Active Substance: CARBAMAZEPINE
     Indication: Trigeminal neuralgia
     Dosage: 100 MILLIGRAM, BID
     Route: 065
     Dates: start: 20191006, end: 20191009
  10. CARBAMAZEPINE [Concomitant]
     Active Substance: CARBAMAZEPINE
     Dosage: 100 MILLIGRAM, BID
     Route: 065
     Dates: start: 20191015, end: 20191206
  11. CARBAMAZEPINE [Concomitant]
     Active Substance: CARBAMAZEPINE
     Dosage: 150 MILLIGRAM
     Route: 065
     Dates: start: 20191010, end: 20191014
  12. PINEAL [Concomitant]
     Indication: Headache
     Dosage: 1 SACHET, QD
     Route: 065
     Dates: start: 20200610
  13. PREGABALIN [Concomitant]
     Active Substance: PREGABALIN
     Indication: Headache
     Dosage: 25 MILLIGRAM, QD
     Route: 065
     Dates: start: 20200610
  14. RINOSTIL [Concomitant]
     Indication: Nasal polyps
     Dosage: 2 PUFFS, QD
     Route: 065
     Dates: start: 20201221
  15. PENICILLIN G BENZATHINE [Concomitant]
     Active Substance: PENICILLIN G BENZATHINE
     Indication: Syphilis
     Dosage: 240000 INTERNATIONAL UNIT, 1/WEEK
     Route: 065
     Dates: start: 201706, end: 201706
  16. PENICILLIN G BENZATHINE [Concomitant]
     Active Substance: PENICILLIN G BENZATHINE
     Dosage: 240000 INTERNATIONAL UNIT
     Route: 065
     Dates: start: 20160216, end: 20160301
  17. TRAMADOL [Concomitant]
     Active Substance: TRAMADOL
     Indication: Pain prophylaxis
     Dosage: 20 DOSAGE FORM, PRN
     Route: 065
     Dates: start: 20191005

REACTIONS (3)
  - Muscular weakness [Recovered/Resolved with Sequelae]
  - Photophobia [Recovered/Resolved with Sequelae]
  - Headache [Recovered/Resolved with Sequelae]

NARRATIVE: CASE EVENT DATE: 20200522
